FAERS Safety Report 4304343-1 (Version None)
Quarter: 2004Q1

REPORT INFORMATION
  Report Type: 
  Country: None (occurrence: None)
  Receive Date: 20040224
  Receipt Date: 20040211
  Transmission Date: 20041129
  Serious: Yes (Other)
  Sender: FDA-Public Use
  Company Number: 2004005000

PATIENT
  Age: 20 Year
  Sex: Female

DRUGS (3)
  1. NEURONTIN [Suspect]
     Indication: PAIN
     Dosage: 1800 MG (600 MG TID)
     Dates: start: 20031101, end: 20031225
  2. NEURONTIN [Suspect]
     Indication: PARAESTHESIA
     Dosage: 1800 MG (600 MG TID)
     Dates: start: 20031101, end: 20031225
  3. SERTRALINE HCL [Concomitant]

REACTIONS (2)
  - LOSS OF CONSCIOUSNESS [None]
  - SYNCOPE [None]
